FAERS Safety Report 5283450-3 (Version None)
Quarter: 2007Q2

REPORT INFORMATION
  Report Type: 
  Country: None (occurrence: None)
  Receive Date: 20070402
  Receipt Date: 20070320
  Transmission Date: 20071010
  Serious: Yes (Hospitalization, Other)
  Sender: FDA-Public Use
  Company Number: JP-MERCK-0703USA00564

PATIENT
  Age: 69 Year
  Sex: Female

DRUGS (12)
  1. FOSAMAX [Suspect]
     Indication: OSTEOPOROSIS
     Route: 048
     Dates: end: 20070219
  2. ONEALFA [Concomitant]
     Indication: OSTEOPOROSIS
     Route: 048
     Dates: end: 20070219
  3. MOBIC [Concomitant]
     Indication: BACK PAIN
     Route: 048
     Dates: end: 20070219
  4. INTEDARU [Concomitant]
     Indication: ATRIAL FIBRILLATION
     Route: 048
     Dates: end: 20070219
  5. CIBENOL [Concomitant]
     Indication: ATRIAL FIBRILLATION
     Route: 048
     Dates: end: 20070219
  6. GASTROMET [Concomitant]
     Route: 048
     Dates: end: 20070219
  7. CEROCRAL [Concomitant]
     Route: 048
     Dates: end: 20070219
  8. NITRAZEPAM [Concomitant]
     Indication: INSOMNIA
     Route: 048
     Dates: end: 20070219
  9. DEPAS [Concomitant]
     Indication: ANXIETY
     Route: 048
     Dates: end: 20070219
  10. SUCRALFATE [Concomitant]
     Indication: GASTRITIS
     Route: 048
     Dates: end: 20070219
  11. SIFROL [Suspect]
     Indication: PARKINSON'S DISEASE
     Route: 048
     Dates: start: 20070117, end: 20070219
  12. MERISLON [Concomitant]
     Route: 048
     Dates: end: 20070219

REACTIONS (5)
  - ANXIETY [None]
  - BLOOD CREATINE PHOSPHOKINASE INCREASED [None]
  - LIVER DISORDER [None]
  - PAIN [None]
  - PARKINSON'S DISEASE [None]
